FAERS Safety Report 19178724 (Version 2)
Quarter: 2021Q2

REPORT INFORMATION
  Report Type: Spontaneous
  Country: US (occurrence: US)
  Receive Date: 20210426
  Receipt Date: 20210507
  Transmission Date: 20210717
  Serious: Yes (Other)
  Sender: FDA-Public Use
  Company Number: US-BAYER-2021-125398

PATIENT
  Age: 71 Year
  Sex: Female
  Weight: 56.24 kg

DRUGS (7)
  1. TADALAFIL. [Interacting]
     Active Substance: TADALAFIL
     Indication: PRODUCT USED FOR UNKNOWN INDICATION
     Dosage: 20 MG, UNK
     Dates: start: 20210409
  2. AMBRISENTAN [Concomitant]
     Active Substance: AMBRISENTAN
  3. ADEMPAS [Suspect]
     Active Substance: RIOCIGUAT
     Indication: PRODUCT USED FOR UNKNOWN INDICATION
     Dosage: 2.5 MG, UNK
     Dates: start: 20210409
  4. TYVASO [Suspect]
     Active Substance: TREPROSTINIL
     Dosage: 0.6 MG/ML
     Route: 055
     Dates: start: 20210222
  5. TYVASO [Suspect]
     Active Substance: TREPROSTINIL
     Dosage: 36 ?G
     Route: 055
     Dates: end: 202103
  6. TYVASO [Suspect]
     Active Substance: TREPROSTINIL
     Dosage: 60?120 ?G, QID
     Route: 055
  7. TYVASO [Suspect]
     Active Substance: TREPROSTINIL
     Dosage: 18?54 ?G (3?9 BREATHS), (QID)
     Route: 055

REACTIONS (12)
  - Blood pressure fluctuation [Unknown]
  - Chest discomfort [Unknown]
  - Cough [Unknown]
  - Headache [Not Recovered/Not Resolved]
  - Labelled drug-drug interaction medication error [None]
  - Contraindicated product administered [None]
  - Critical illness [Unknown]
  - Somnolence [Unknown]
  - Dyspnoea [Unknown]
  - Oxygen saturation decreased [Unknown]
  - Sinus disorder [Unknown]
  - Dyspnoea exertional [Unknown]

NARRATIVE: CASE EVENT DATE: 202103
